FAERS Safety Report 24524032 (Version 3)
Quarter: 2025Q1

REPORT INFORMATION
  Report Type: Spontaneous
  Country: US (occurrence: US)
  Receive Date: 20241018
  Receipt Date: 20250124
  Transmission Date: 20250409
  Serious: Yes (Other)
  Sender: RIGEL PHARMACEUTICALS
  Company Number: US-RIGEL Pharmaceuticals, INC-20241000121

PATIENT
  Age: 56 Year
  Sex: Male

DRUGS (3)
  1. GAVRETO [Suspect]
     Active Substance: PRALSETINIB
     Indication: Thyroid cancer
     Dosage: 400 MILLIGRAM, QD
     Route: 048
     Dates: start: 20240716
  2. GAVRETO [Suspect]
     Active Substance: PRALSETINIB
  3. GAVRETO [Suspect]
     Active Substance: PRALSETINIB
     Dosage: 400 MILLIGRAM, QD
     Route: 048
     Dates: start: 20240716

REACTIONS (6)
  - Tenoplasty [Unknown]
  - Tendon rupture [Unknown]
  - Tendon injury [Unknown]
  - Exercise tolerance decreased [Unknown]
  - Blood pressure increased [Recovered/Resolved]
  - Constipation [Unknown]

NARRATIVE: CASE EVENT DATE: 20240801
